FAERS Safety Report 4754647-3 (Version None)
Quarter: 2005Q3

REPORT INFORMATION
  Report Type: 
  Country: None (occurrence: None)
  Receive Date: 20050829
  Receipt Date: 20050815
  Transmission Date: 20060218
  Serious: Yes (Other)
  Sender: FDA-Public Use
  Company Number: JP-MERCK-0508USA03293B1

PATIENT
  Sex: Male
  Weight: 1 kg

DRUGS (5)
  1. INDOCIN [Suspect]
     Indication: THREATENED LABOUR
     Dates: start: 20050809, end: 20050810
  2. INDOCIN [Suspect]
     Dates: start: 20050811, end: 20050811
  3. UTEMERIN [Concomitant]
     Indication: THREATENED LABOUR
     Dates: start: 20050712
  4. MAGNESIUM SULFATE [Concomitant]
     Dates: start: 20050809
  5. GASTER [Concomitant]
     Dates: start: 20050812

REACTIONS (2)
  - PREMATURE BABY [None]
  - SMALL FOR DATES BABY [None]
